FAERS Safety Report 24611914 (Version 2)
Quarter: 2024Q4

REPORT INFORMATION
  Report Type: Spontaneous
  Country: US (occurrence: US)
  Receive Date: 20241113
  Receipt Date: 20241121
  Transmission Date: 20250114
  Serious: No
  Sender: SANDOZ
  Company Number: US-SANDOZ-SDZ2024US094668

PATIENT
  Sex: Female

DRUGS (5)
  1. AMIODARONE HYDROCHLORIDE [Suspect]
     Active Substance: AMIODARONE HYDROCHLORIDE
     Indication: Cardiac disorder
     Dosage: 6 TABLETS A DAY TO SHOCK THE HEART,DAYS LATER THIS WAS CHANGED TO 1 TABLET
     Route: 065
  2. DOTTI [Suspect]
     Active Substance: ESTRADIOL
     Indication: Product used for unknown indication
     Dosage: UNK
     Route: 065
  3. ESTRADIOL [Suspect]
     Active Substance: ESTRADIOL
     Indication: Product used for unknown indication
     Dosage: 0.75 MG
     Route: 065
  4. AMIODARONE [Suspect]
     Active Substance: AMIODARONE
     Indication: Product used for unknown indication
     Dosage: 1 TABLET, 100
     Route: 065
  5. VIVELLE-DOT [Suspect]
     Active Substance: ESTRADIOL
     Indication: Hormone replacement therapy
     Route: 065

REACTIONS (6)
  - Premenstrual syndrome [Unknown]
  - Dizziness [Unknown]
  - Headache [Unknown]
  - Feeling abnormal [Unknown]
  - Asthenia [Unknown]
  - Hyperoestrogenism [Unknown]
